FAERS Safety Report 9312214 (Version 3)
Quarter: 2013Q3

REPORT INFORMATION
  Report Type: Spontaneous
  Country: BG (occurrence: BG)
  Receive Date: 20130528
  Receipt Date: 20130711
  Transmission Date: 20140515
  Serious: Yes (Hospitalization)
  Sender: FDA-Public Use
  Company Number: BG-BAXTER-2013BAX018773

PATIENT
  Age: 4 Year
  Sex: Male

DRUGS (3)
  1. ADVATE 1500 IU POWDER AND SOLVENT FOR SOLUTION FOR INJECTION [Suspect]
     Indication: HAEMOPHILIA A WITH ANTI FACTOR VIII
     Route: 042
     Dates: start: 20130515
  2. ADVATE 1500 IU POWDER AND SOLVENT FOR SOLUTION FOR INJECTION [Suspect]
     Route: 042
     Dates: start: 20130518
  3. FEIBA 500U [Concomitant]
     Indication: PRODUCT USED FOR UNKNOWN INDICATION
     Dosage: 500 U
     Route: 065

REACTIONS (2)
  - Simple partial seizures [Recovered/Resolved]
  - Pyrexia [Unknown]
